FAERS Safety Report 8517829-0 (Version None)
Quarter: 2012Q3

REPORT INFORMATION
  Report Type: 
  Country: None (occurrence: None)
  Receive Date: 20120712
  Receipt Date: 20120712
  Transmission Date: 20120928
  Serious: Yes (Other)
  Sender: FDA-Public Use
  Company Number: None

PATIENT
  Sex: Male

DRUGS (1)
  1. CIALIS [Suspect]
     Indication: ERECTILE DYSFUNCTION
     Dosage: 20MG AS NEEDED PO
     Route: 048

REACTIONS (6)
  - FATIGUE [None]
  - VISUAL IMPAIRMENT [None]
  - HYPOTHYROIDISM [None]
  - MYALGIA [None]
  - AUTOIMMUNE THYROIDITIS [None]
  - UNEVALUABLE EVENT [None]
